FAERS Safety Report 5455542-7 (Version None)
Quarter: 2007Q3

REPORT INFORMATION
  Report Type: 
  Country: None (occurrence: None)
  Receive Date: 20070918
  Receipt Date: 20070330
  Transmission Date: 20080115
  Serious: Yes (Other)
  Sender: FDA-Public Use
  Company Number: US-ASTRAZENECA-2006UW21775

PATIENT
  Age: 47 Year
  Sex: Female
  Weight: 113.6 kg

DRUGS (5)
  1. SEROQUEL [Suspect]
     Indication: DEPRESSION
     Route: 048
  2. LEVOTHYROXINE SODIUM [Concomitant]
     Indication: WEIGHT CONTROL
     Route: 048
  3. CLOZARIL [Concomitant]
  4. RISPERDAL [Concomitant]
  5. ZOLOFT [Concomitant]

REACTIONS (2)
  - DIABETES MELLITUS [None]
  - DIABETIC COMA [None]
